FAERS Safety Report 4735364-2 (Version None)
Quarter: 2005Q3

REPORT INFORMATION
  Report Type: 
  Country: None (occurrence: None)
  Receive Date: 20050805
  Receipt Date: 20050728
  Transmission Date: 20060218
  Serious: Yes (Death)
  Sender: FDA-Public Use
  Company Number: FR-ROCHE-412241

PATIENT
  Age: 54 Year
  Sex: Male
  Weight: 109 kg

DRUGS (13)
  1. ROCEPHIN [Suspect]
     Route: 030
     Dates: end: 20040428
  2. LASILIX [Concomitant]
     Indication: HYPERTENSION
     Route: 048
     Dates: end: 20040428
  3. HUMALOG MIX [Concomitant]
     Indication: DIABETES MELLITUS
     Route: 058
     Dates: start: 19690701, end: 20040428
  4. TAREG [Concomitant]
     Indication: ESSENTIAL HYPERTENSION
     Route: 048
     Dates: end: 20040428
  5. INSULINE [Concomitant]
     Indication: DIABETES MELLITUS
     Route: 058
     Dates: start: 19690701, end: 20040428
  6. KARDEGIC [Concomitant]
     Route: 048
     Dates: start: 20030701, end: 20040428
  7. AMLODIPINE BESYLATE [Concomitant]
     Dosage: ONE TABLET IN THE MORNING.
     Dates: start: 20030115, end: 20040428
  8. SECTRAL [Concomitant]
     Dosage: ONE TABLET IN THE MORNING AND ONE TABLET IN THE EVENING.
     Dates: start: 20030115, end: 20040428
  9. PLAVIX [Concomitant]
     Dosage: ONE DOSE IN THE EVENING.
     Dates: start: 20030115, end: 20040428
  10. PRAVASTATIN [Concomitant]
     Dosage: ONE TABLET IN THE EVENING.
     Dates: end: 20040428
  11. VASTAREL [Concomitant]
     Dosage: ONE DOSE IN THE MORNING AND ONE DOSE IN THE EVENING.
     Dates: end: 20040428
  12. PARIET [Concomitant]
     Dosage: ONE DOSE IN THE EVENING.
     Dates: end: 20040428
  13. LEVOTHYROX [Concomitant]
     Dosage: HALF TABLET IN THE MORNING.
     Dates: end: 20040428

REACTIONS (4)
  - ANAPHYLACTIC SHOCK [None]
  - CARDIAC ARREST [None]
  - CARDIO-RESPIRATORY ARREST [None]
  - RESPIRATORY ARREST [None]
